FAERS Safety Report 20744795 (Version 1)
Quarter: 2022Q2

REPORT INFORMATION
  Report Type: Report from Study
  Country: GB (occurrence: GB)
  Receive Date: 20220425
  Receipt Date: 20220425
  Transmission Date: 20220721
  Serious: Yes (Other)
  Sender: FDA-Public Use
  Company Number: GB-LEO Pharma-342253

PATIENT
  Age: 61 Year
  Sex: Female

DRUGS (2)
  1. BRODALUMAB [Suspect]
     Active Substance: BRODALUMAB
     Indication: Psoriasis
     Dosage: 210MG FOR WEEK 0, 1, 2 AND THEN EVERY TWO WEEKS
     Route: 058
     Dates: start: 20211015, end: 20220327
  2. BRODALUMAB [Suspect]
     Active Substance: BRODALUMAB
     Dosage: 210MG FOR WEEK 0, 1, 2 AND THEN EVERY TWO WEEKS
     Route: 058
     Dates: start: 20220410

REACTIONS (3)
  - Psoriatic arthropathy [Unknown]
  - Lower respiratory tract infection [Recovered/Resolved]
  - Product dose omission issue [Unknown]

NARRATIVE: CASE EVENT DATE: 20211015
